FAERS Safety Report 10028167 (Version 1)
Quarter: 2014Q1

REPORT INFORMATION
  Report Type: Spontaneous
  Country: US (occurrence: None)
  Receive Date: 20140319
  Receipt Date: 20140319
  Transmission Date: 20141002
  Serious: Yes (Hospitalization)
  Sender: FDA-Public Use
  Company Number: SYM-2014-18383

PATIENT
  Sex: Female

DRUGS (5)
  1. ATIVAN [Suspect]
     Indication: PRODUCT USED FOR UNKNOWN INDICATION
  2. ZOLOFT [Suspect]
     Indication: PRODUCT USED FOR UNKNOWN INDICATION
  3. COUMADIN (WARFARIN SODIUM) [Concomitant]
  4. SOTALOL [Concomitant]
  5. REMERON (MIRTAZAPINE) [Concomitant]

REACTIONS (2)
  - Anxiety [None]
  - Cardiac disorder [None]
